FAERS Safety Report 18547570 (Version 2)
Quarter: 2020Q4

REPORT INFORMATION
  Report Type: Spontaneous
  Country: GR (occurrence: GR)
  Receive Date: 20201125
  Receipt Date: 20201223
  Transmission Date: 20210114
  Serious: Yes (Other)
  Sender: FDA-Public Use
  Company Number: GR-PFIZER INC-2020460819

PATIENT
  Sex: Male

DRUGS (6)
  1. ALECTINIB. [Suspect]
     Active Substance: ALECTINIB
  2. PLATINUM [Suspect]
     Active Substance: PLATINUM
  3. LORLATINIB [Concomitant]
     Active Substance: LORLATINIB
  4. BEVACIZUMAB. [Suspect]
     Active Substance: BEVACIZUMAB
  5. ATEZOLIZUMAB. [Suspect]
     Active Substance: ATEZOLIZUMAB
  6. XALKORI [Suspect]
     Active Substance: CRIZOTINIB
     Indication: LUNG NEOPLASM MALIGNANT

REACTIONS (2)
  - Neoplasm progression [Unknown]
  - Renal failure [Unknown]
